FAERS Safety Report 15029464 (Version 2)
Quarter: 2018Q3

REPORT INFORMATION
  Report Type: Report from Study
  Country: US (occurrence: US)
  Receive Date: 20180619
  Receipt Date: 20180717
  Transmission Date: 20181010
  Serious: Yes (Hospitalization, Other)
  Sender: FDA-Public Use
  Company Number: US-GILEAD-2018-0343969

PATIENT
  Age: 42 Year
  Sex: Female

DRUGS (1)
  1. AZTREONAM LYSINE [Suspect]
     Active Substance: AZTREONAM LYSINE
     Indication: CYSTIC FIBROSIS
     Dosage: 75 MG, TID ON 28 DAYS OFF 28 DAYS
     Route: 055

REACTIONS (4)
  - Cystic fibrosis [Unknown]
  - Pneumonia [Unknown]
  - Oropharyngeal pain [Unknown]
  - Dysphonia [Unknown]
